FAERS Safety Report 7828532-4 (Version None)
Quarter: 2011Q4

REPORT INFORMATION
  Report Type: 
  Country: None (occurrence: None)
  Receive Date: 20111020
  Receipt Date: 20111014
  Transmission Date: 20120403
  Serious: Yes (Other)
  Sender: FDA-Public Use
  Company Number: US-SANOFI-AVENTIS-2011SA067960

PATIENT
  Sex: Female

DRUGS (4)
  1. PLAVIX [Suspect]
     Route: 048
     Dates: start: 20060101
  2. VITAMIN TAB [Concomitant]
  3. PROPRANOLOL [Concomitant]
  4. ALL OTHER THERAPEUTIC PRODUCTS [Concomitant]

REACTIONS (5)
  - MACULAR DEGENERATION [None]
  - DIARRHOEA [None]
  - CONSTIPATION [None]
  - PRURITUS [None]
  - VISUAL ACUITY REDUCED [None]
